FAERS Safety Report 22288499 (Version 4)
Quarter: 2024Q3

REPORT INFORMATION
  Report Type: Spontaneous
  Country: IN (occurrence: IN)
  Receive Date: 20230505
  Receipt Date: 20240701
  Transmission Date: 20241017
  Serious: Yes (Other)
  Sender: PFIZER
  Company Number: IN-PFIZER INC-PV202300079237

PATIENT
  Age: 44 Year
  Sex: Female

DRUGS (2)
  1. CRIZOTINIB [Suspect]
     Active Substance: CRIZOTINIB
     Dosage: 250 MG
     Route: 048
  2. CRIZOTINIB [Suspect]
     Active Substance: CRIZOTINIB
     Dosage: 250 MG, 2X/DAY
     Route: 048
     Dates: start: 20231223

REACTIONS (10)
  - Sinus bradycardia [Unknown]
  - Bundle branch block right [Unknown]
  - QRS axis abnormal [Unknown]
  - Eastern Cooperative Oncology Group performance status abnormal [Unknown]
  - Rash [Unknown]
  - Pruritus [Unknown]
  - Peripheral swelling [Recovered/Resolved]
  - Blood creatine increased [Unknown]
  - Haemoglobin decreased [Unknown]
  - Creatinine renal clearance decreased [Unknown]

NARRATIVE: CASE EVENT DATE: 20231212
